FAERS Safety Report 20708851 (Version 2)
Quarter: 2022Q2

REPORT INFORMATION
  Report Type: Spontaneous
  Country: JP (occurrence: JP)
  Receive Date: 20220414
  Receipt Date: 20220428
  Transmission Date: 20220721
  Serious: Yes (Other)
  Sender: FDA-Public Use
  Company Number: JP-ASTPRDJPN-AER-2022-001833

PATIENT
  Age: 18 Year
  Sex: Male

DRUGS (10)
  1. PROGRAF [Suspect]
     Active Substance: TACROLIMUS
     Indication: Prophylaxis against graft versus host disease
     Dosage: 0.01 MG/KG/DAY, UNKNOWN FREQ.
     Route: 042
  2. CYCLOSPORINE [Concomitant]
     Active Substance: CYCLOSPORINE
     Indication: Aplastic anaemia
     Dosage: UNK UNK, UNKNOWN FREQ.
     Route: 065
  3. FLUDARABINE PHOSPHATE [Concomitant]
     Active Substance: FLUDARABINE PHOSPHATE
     Indication: Bone marrow conditioning regimen
     Dosage: 25 MG/M2/DAY, UNKNOWN FREQ.
     Route: 065
  4. MELPHALAN [Concomitant]
     Active Substance: MELPHALAN
     Indication: Bone marrow conditioning regimen
     Dosage: 70 MG/M2/DAY, UNKNOWN FREQ.
     Route: 065
  5. LAPINE T-LYMPHOCYTE IMMUNE GLOBULIN [Concomitant]
     Active Substance: LAPINE T-LYMPHOCYTE IMMUNE GLOBULIN
     Indication: Bone marrow conditioning regimen
     Dosage: 1.25 MG/KG/DAY, UNKNOWN FREQ.
     Route: 065
  6. MYCOPHENOLATE MOFETIL [Concomitant]
     Active Substance: MYCOPHENOLATE MOFETIL
     Indication: Prophylaxis against graft versus host disease
     Dosage: UNK UNK, UNKNOWN FREQ.
     Route: 065
  7. MYCOPHENOLATE MOFETIL [Concomitant]
     Active Substance: MYCOPHENOLATE MOFETIL
     Dosage: UNK UNK, UNKNOWN FREQ.
     Route: 065
  8. METHYLPREDNISOLONE [Concomitant]
     Active Substance: METHYLPREDNISOLONE
     Indication: Prophylaxis against graft versus host disease
     Dosage: UNK UNK, UNKNOWN FREQ.
     Route: 042
  9. METHYLPREDNISOLONE [Concomitant]
     Active Substance: METHYLPREDNISOLONE
     Dosage: UNK UNK, UNKNOWN FREQ.
     Route: 042
  10. METHOTREXATE [Concomitant]
     Active Substance: METHOTREXATE
     Indication: Prophylaxis against graft versus host disease
     Dosage: UNK UNK, UNKNOWN FREQ.
     Route: 065

REACTIONS (1)
  - Toxic encephalopathy [Recovered/Resolved]
